FAERS Safety Report 4957050-6 (Version None)
Quarter: 2006Q1

REPORT INFORMATION
  Report Type: 
  Country: None (occurrence: None)
  Receive Date: 20060323
  Receipt Date: 20060313
  Transmission Date: 20060701
  Serious: Yes (Other)
  Sender: FDA-Public Use
  Company Number: 2001-04-0278

PATIENT
  Age: 42 Year
  Sex: Male
  Weight: 101 kg

DRUGS (5)
  1. GEMFIBROZIL [Suspect]
     Indication: HYPERTRIGLYCERIDAEMIA
     Dosage: 600-300 MG* ORAL
     Route: 048
     Dates: start: 20001219, end: 20010122
  2. GEMFIBROZIL [Suspect]
     Indication: HYPERTRIGLYCERIDAEMIA
     Dosage: 600-300 MG* ORAL
     Route: 048
     Dates: start: 20010123, end: 20010306
  3. GEMFIBROZIL [Suspect]
     Indication: HYPERTRIGLYCERIDAEMIA
     Dosage: 600-300 MG* ORAL
     Route: 048
     Dates: start: 20010609
  4. INTRON A [Suspect]
     Indication: MALIGNANT MELANOMA STAGE III
     Dosage: 11 MIU TIW SUBCUTANEOUS
     Route: 058
     Dates: start: 20000306
  5. MELACINE INJECTABLE POWDER [Suspect]
     Indication: MALIGNANT MELANOMA STAGE III
     Dosage: 1.25 ML SUBCUTANEOUS
     Route: 058
     Dates: start: 20000306

REACTIONS (7)
  - ABDOMINAL DISCOMFORT [None]
  - ALANINE AMINOTRANSFERASE INCREASED [None]
  - ASPARTATE AMINOTRANSFERASE INCREASED [None]
  - DECREASED APPETITE [None]
  - HYPERTRIGLYCERIDAEMIA [None]
  - NAUSEA [None]
  - WEIGHT DECREASED [None]
